FAERS Safety Report 25193187 (Version 2)
Quarter: 2025Q3

REPORT INFORMATION
  Report Type: Report from Study
  Country: US (occurrence: US)
  Receive Date: 20250414
  Receipt Date: 20250724
  Transmission Date: 20251020
  Serious: Yes (Death, Hospitalization, Other)
  Sender: GILEAD
  Company Number: US-GILEAD-2025-0710147

PATIENT
  Sex: Male

DRUGS (14)
  1. AZTREONAM LYSINE [Suspect]
     Active Substance: AZTREONAM LYSINE
     Indication: Cystic fibrosis
     Dosage: INHALE 1 VIAL (75 MG) VIA ALTERA NEBULIZER THREE TIMES A DAY, FOR 28 DAYS FOLLOWED BY 28 DAYS OFF
     Route: 055
  2. I IBUPROFEN [Concomitant]
  3. HUMALOG [Concomitant]
     Active Substance: INSULIN LISPRO
  4. DULERA [Concomitant]
     Active Substance: FORMOTEROL FUMARATE DIHYDRATE\MOMETASONE FUROATE
  5. LANTUS [Concomitant]
     Active Substance: INSULIN GLARGINE
  6. VITAMIN B6 [Concomitant]
     Active Substance: PYRIDOXINE HYDROCHLORIDE
  7. CALCIUM CARBONATE [Concomitant]
     Active Substance: CALCIUM CARBONATE
  8. RETINOL [Concomitant]
     Active Substance: RETINOL
  9. SENNA+ [Concomitant]
  10. VITAMIN B12 [Concomitant]
     Active Substance: CYANOCOBALAMIN
  11. ALENDRONATE SODIUM [Concomitant]
     Active Substance: ALENDRONATE SODIUM
  12. MAGNESIUM [Concomitant]
     Active Substance: MAGNESIUM
  13. CITRACAL + D3 [Concomitant]
  14. AZITHROMYCIN [Concomitant]
     Active Substance: AZITHROMYCIN

REACTIONS (3)
  - Death [Fatal]
  - Neoplasm malignant [Unknown]
  - Catheter placement [Unknown]
